FAERS Safety Report 9865451 (Version 2)
Quarter: 2014Q1

REPORT INFORMATION
  Report Type: Spontaneous
  Country: US (occurrence: US)
  Receive Date: 20140203
  Receipt Date: 20140203
  Transmission Date: 20141002
  Serious: No
  Sender: FDA-Public Use
  Company Number: US-ALLERGAN-1308794US

PATIENT
  Age: 68 Year
  Sex: Female

DRUGS (13)
  1. RESTASIS [Suspect]
     Indication: DRY EYE
     Dosage: 2 GTT, BID
     Route: 047
  2. SIMVASTATIN [Concomitant]
     Indication: BLOOD CHOLESTEROL INCREASED
     Dosage: 20 MG, QD
     Route: 048
  3. GENTEAL                            /00445101/ [Concomitant]
     Indication: DRY EYE
     Dosage: UNK UNK, PRN
  4. MVI [Concomitant]
     Indication: SUPPLEMENTATION THERAPY
  5. CALCIUM WITH VITAMIN D             /00944201/ [Concomitant]
     Indication: SUPPLEMENTATION THERAPY
  6. SINGULAR [Concomitant]
     Indication: HYPERSENSITIVITY
     Dosage: 10 MG, UNK
     Route: 048
  7. ESTER C                            /00008001/ [Concomitant]
     Indication: SUPPLEMENTATION THERAPY
  8. LUTEIN [Concomitant]
     Indication: SUPPLEMENTATION THERAPY
  9. GLUCOSAMINE [Concomitant]
     Indication: SUPPLEMENTATION THERAPY
  10. OMEGA 3 [Concomitant]
     Indication: SUPPLEMENTATION THERAPY
  11. HAIR SUPPLEMENT NOS [Concomitant]
     Indication: SUPPLEMENTATION THERAPY
  12. EVISTA [Concomitant]
     Indication: BONE DISORDER
     Dosage: 60 MG, QD
     Route: 048
  13. GARLIC                             /01570501/ [Concomitant]
     Indication: SUPPLEMENTATION THERAPY

REACTIONS (9)
  - Eye haemorrhage [Unknown]
  - Incorrect dose administered [Unknown]
  - Lacrimation increased [Unknown]
  - Eye pain [Unknown]
  - Eye pruritus [Unknown]
  - Vision blurred [Unknown]
  - Foreign body sensation in eyes [Unknown]
  - Eye pain [Unknown]
  - Ocular hyperaemia [Recovering/Resolving]
